FAERS Safety Report 13839505 (Version 1)
Quarter: 2017Q3

REPORT INFORMATION
  Report Type: Spontaneous
  Country: US (occurrence: US)
  Receive Date: 20170805
  Receipt Date: 20170805
  Transmission Date: 20171127
  Serious: Yes (Hospitalization)
  Sender: FDA-Public Use
  Company Number: None

PATIENT
  Age: 51 Year
  Sex: Female

DRUGS (13)
  1. LABETALOL [Concomitant]
     Active Substance: LABETALOL\LABETALOL HYDROCHLORIDE
  2. ISOVUE [Suspect]
     Active Substance: IOPAMIDOL
     Indication: COMPUTERISED TOMOGRAM
     Route: 042
     Dates: start: 20170307
  3. BUPROPION. [Concomitant]
     Active Substance: BUPROPION
  4. CALCITRIOL. [Concomitant]
     Active Substance: CALCITRIOL
  5. LEVOTHYROXINE. [Concomitant]
     Active Substance: LEVOTHYROXINE
  6. NIFEDIPINE. [Concomitant]
     Active Substance: NIFEDIPINE
  7. PRAVASTATIN. [Concomitant]
     Active Substance: PRAVASTATIN
  8. CALCIUM ACETATE. [Concomitant]
     Active Substance: CALCIUM ACETATE
  9. DOCUSATE [Concomitant]
     Active Substance: DOCUSATE
  10. PEG [Concomitant]
     Active Substance: POLYETHYLENE GLYCOLS
  11. LOSARTAN. [Concomitant]
     Active Substance: LOSARTAN
  12. SEVELAMER [Concomitant]
     Active Substance: SEVELAMER
  13. LORATADINE. [Concomitant]
     Active Substance: LORATADINE

REACTIONS (4)
  - Respiratory distress [None]
  - Drooling [None]
  - Dyspnoea [None]
  - Tongue oedema [None]

NARRATIVE: CASE EVENT DATE: 20170307
